FAERS Safety Report 24684233 (Version 1)
Quarter: 2024Q4

REPORT INFORMATION
  Report Type: Spontaneous
  Country: KR (occurrence: KR)
  Receive Date: 20241202
  Receipt Date: 20241202
  Transmission Date: 20250114
  Serious: Yes (Hospitalization, Other)
  Sender: BRISTOL-MYERS SQUIBB COMPANY
  Company Number: KR-BRISTOL-MYERS SQUIBB COMPANY-2024-182177

PATIENT
  Age: 59 Year
  Sex: Male
  Weight: 74.2 kg

DRUGS (4)
  1. BARACLUDE [Suspect]
     Active Substance: ENTECAVIR
     Indication: Hepatitis B
     Dates: start: 20171201
  2. EVEROLIMUS [Suspect]
     Active Substance: EVEROLIMUS
     Indication: Prophylaxis against transplant rejection
  3. PANTOPRAZOLE SODIUM [Concomitant]
     Active Substance: PANTOPRAZOLE SODIUM
     Indication: Gastrointestinal disorder prophylaxis
     Dates: start: 20191225
  4. URSODIOL [Concomitant]
     Active Substance: URSODIOL
     Indication: Hepatic function abnormal
     Dates: start: 20191205

REACTIONS (6)
  - Osteonecrosis [Recovering/Resolving]
  - Lumbar spinal stenosis [Unknown]
  - Hepatocellular carcinoma [Recovered/Resolved]
  - Diabetes mellitus [Unknown]
  - Hyperlipidaemia [Unknown]
  - Pterygium [Unknown]

NARRATIVE: CASE EVENT DATE: 20180508
